FAERS Safety Report 5372773-5 (Version None)
Quarter: 2007Q2

REPORT INFORMATION
  Report Type: 
  Country: None (occurrence: None)
  Receive Date: 20070621
  Receipt Date: 20060718
  Transmission Date: 20071010
  Serious: Yes (Other)
  Sender: FDA-Public Use
  Company Number: US-JNJFOC-20060703837

PATIENT
  Age: 58 Year
  Sex: Female
  Weight: 74.8435 kg

DRUGS (6)
  1. HALDOL DECANOATE (HALOPERIDOL DECANOATE) INJECTION [Suspect]
     Indication: SCHIZOPHRENIA
     Dosage: 100 MG, 1 IN 1 MONTH, INTRAMUSCULAR
     Route: 030
     Dates: start: 20060511, end: 20060601
  2. RISPERDAL CONSTA [Suspect]
     Indication: SCHIZOPHRENIA
     Dosage: 25 MG, 1 IN 2 WEEK, INTRAMUSCULAR
     Route: 030
     Dates: start: 20060601
  3. COGENTIN (BENZATROPINE MESILATE) TABLETS [Concomitant]
  4. EFFEXOR [Concomitant]
  5. PHENERGAN [Concomitant]
  6. TRAMADOL HCL [Concomitant]

REACTIONS (7)
  - DECREASED APPETITE [None]
  - DRY MOUTH [None]
  - EYE DISORDER [None]
  - MEMORY IMPAIRMENT [None]
  - MUSCLE TWITCHING [None]
  - TREMOR [None]
  - WEIGHT DECREASED [None]
